FAERS Safety Report 12968095 (Version 1)
Quarter: 2016Q4

REPORT INFORMATION
  Report Type: Spontaneous
  Country: FR (occurrence: FR)
  Receive Date: 20161123
  Receipt Date: 20161123
  Transmission Date: 20170207
  Serious: Yes (Other)
  Sender: FDA-Public Use
  Company Number: FR-AMGEN-FRASP2016162743

PATIENT
  Age: 58 Year
  Sex: Female

DRUGS (11)
  1. SKENAN [Concomitant]
     Active Substance: MORPHINE SULFATE
     Dosage: 10 MG, UNK
  2. TAHOR [Concomitant]
     Active Substance: ATORVASTATIN CALCIUM
     Dosage: 20 MG, UNK
  3. INEXIUM [Concomitant]
     Active Substance: ESOMEPRAZOLE
     Dosage: 40 MG, UNK
  4. TAZOBACTAM [Concomitant]
     Active Substance: TAZOBACTAM
  5. ZARZIO [Concomitant]
     Active Substance: FILGRASTIM
  6. PIPERACILLIN [Concomitant]
     Active Substance: PIPERACILLIN
  7. XGEVA [Suspect]
     Active Substance: DENOSUMAB
     Indication: METASTASES TO BONE
     Dosage: 120 MG, UNK
     Route: 058
     Dates: start: 20161007, end: 20161007
  8. CIPROFLOXACIN. [Concomitant]
     Active Substance: CIPROFLOXACIN
  9. BIPROFENID [Concomitant]
     Active Substance: KETOPROFEN
  10. ZOPHREN [Concomitant]
     Active Substance: ONDANSETRON
  11. MICARDISPLUS [Concomitant]
     Active Substance: HYDROCHLOROTHIAZIDE\TELMISARTAN

REACTIONS (3)
  - Vitamin D deficiency [Not Recovered/Not Resolved]
  - Hypocalcaemia [Not Recovered/Not Resolved]
  - Hyperparathyroidism secondary [Not Recovered/Not Resolved]

NARRATIVE: CASE EVENT DATE: 20161010
